FAERS Safety Report 19481789 (Version 1)
Quarter: 2021Q2

REPORT INFORMATION
  Report Type: Spontaneous
  Country: US (occurrence: US)
  Receive Date: 20210630
  Receipt Date: 20210630
  Transmission Date: 20210717
  Serious: Yes (Hospitalization)
  Sender: FDA-Public Use
  Company Number: None

PATIENT
  Age: 43 Year
  Sex: Male

DRUGS (9)
  1. HUMIRA [Suspect]
     Active Substance: ADALIMUMAB
     Indication: PSORIASIS
     Dosage: ?          OTHER FREQUENCY:EVERY 2 WEEKS;?
     Route: 058
     Dates: start: 20200312
  2. CEPHALEXIN. [Concomitant]
     Active Substance: CEPHALEXIN
  3. CYCLOBENZAPR [Concomitant]
     Active Substance: CYCLOBENZAPRINE
  4. CLOBETASOL [Concomitant]
     Active Substance: CLOBETASOL
  5. BENZONATATE. [Concomitant]
     Active Substance: BENZONATATE
  6. DEXAMETHASON [Concomitant]
     Active Substance: DEXAMETHASONE
  7. AZITHROMYCIN ANHYDROUS. [Concomitant]
     Active Substance: AZITHROMYCIN ANHYDROUS
  8. ALBUTEROL. [Concomitant]
     Active Substance: ALBUTEROL
  9. SMZ/TMP DS [Concomitant]
     Active Substance: SULFAMETHOXAZOLE\TRIMETHOPRIM

REACTIONS (3)
  - Bronchitis [None]
  - Hepatic enzyme increased [None]
  - Renal cyst [None]
